FAERS Safety Report 17364424 (Version 2)
Quarter: 2020Q1

REPORT INFORMATION
  Report Type: Spontaneous
  Country: ES (occurrence: ES)
  Receive Date: 20200204
  Receipt Date: 20200320
  Transmission Date: 20200409
  Serious: Yes (Death, Hospitalization)
  Sender: FDA-Public Use
  Company Number: ES-SUN PHARMACEUTICAL INDUSTRIES LTD-2020RR-235510

PATIENT
  Age: 75 Year
  Sex: Female

DRUGS (3)
  1. ATORVASTATIN [Suspect]
     Active Substance: ATORVASTATIN
     Indication: DYSLIPIDAEMIA
     Dosage: 40 MILLIGRAMS, DAILY
     Route: 048
     Dates: start: 20170203, end: 20180209
  2. HIDROCLOROTIAZIDA (1343A) [Interacting]
     Active Substance: HYDROCHLOROTHIAZIDE
     Indication: HYPERTENSION
     Dosage: 12.5 MILLIGRAMS, DAILY
     Route: 048
     Dates: start: 20141016, end: 20180209
  3. ENALAPRIL [Interacting]
     Active Substance: ENALAPRIL
     Indication: HYPERTENSION
     Dosage: 20 MILLIGRAM, DAILY
     Route: 048
     Dates: start: 20141016, end: 20180209

REACTIONS (1)
  - Acute kidney injury [Recovered/Resolved]

NARRATIVE: CASE EVENT DATE: 20180209
